FAERS Safety Report 26105822 (Version 1)
Quarter: 2025Q4

REPORT INFORMATION
  Report Type: Spontaneous
  Country: CA (occurrence: CA)
  Receive Date: 20251201
  Receipt Date: 20251201
  Transmission Date: 20260118
  Serious: Yes (Death, Other)
  Sender: AUROBINDO
  Company Number: CA-AUROBINDO-AUR-APL-2024-051112

PATIENT
  Age: 76 Year
  Sex: Male

DRUGS (2)
  1. PIRFENIDONE [Suspect]
     Active Substance: PIRFENIDONE
     Indication: Pulmonary fibrosis
     Dosage: UNK
  2. PIRFENIDONE [Suspect]
     Active Substance: PIRFENIDONE
     Indication: Pulmonary fibrosis
     Dosage: 801 MILLIGRAM, 3 TIMES A DAY (3 EVERY 1 DAYS)

REACTIONS (4)
  - Death [Fatal]
  - Skin cancer [Fatal]
  - Forced vital capacity decreased [Fatal]
  - Wrong technique in product usage process [Fatal]
